FAERS Safety Report 19973418 (Version 1)
Quarter: 2021Q4

REPORT INFORMATION
  Report Type: Spontaneous
  Country: US (occurrence: US)
  Receive Date: 20211019
  Receipt Date: 20211019
  Transmission Date: 20220303
  Serious: No
  Sender: FDA-Public Use
  Company Number: None

PATIENT
  Age: 84 Year
  Sex: Female

DRUGS (1)
  1. DEFERASIROX [Suspect]
     Active Substance: DEFERASIROX
     Route: 048
     Dates: start: 20210516

REACTIONS (2)
  - Transfusion [None]
  - Therapy interrupted [None]

NARRATIVE: CASE EVENT DATE: 20211017
